FAERS Safety Report 5399353-X (Version None)
Quarter: 2007Q3

REPORT INFORMATION
  Report Type: 
  Country: None (occurrence: None)
  Receive Date: 20070727
  Receipt Date: 20070716
  Transmission Date: 20080115
  Serious: Yes (Other)
  Sender: FDA-Public Use
  Company Number: CA-ROCHE-505727

PATIENT
  Age: 17 Year
  Sex: Female

DRUGS (1)
  1. ACCUTANE [Suspect]
     Indication: ACNE
     Dosage: REPORTED TO BE TAKEN EVERY OTHER DAY. A TOTAL OF 13 CAPSULES WERE TAKEN.OVER 26 DAYS
     Route: 048
     Dates: start: 20070409, end: 20070505

REACTIONS (2)
  - NO ADVERSE REACTION [None]
  - PREGNANCY [None]
